FAERS Safety Report 18316696 (Version 1)
Quarter: 2020Q3

REPORT INFORMATION
  Report Type: Spontaneous
  Country: SE (occurrence: SE)
  Receive Date: 20200928
  Receipt Date: 20200928
  Transmission Date: 20201103
  Serious: Yes (Hospitalization)
  Sender: FDA-Public Use
  Company Number: SE-JNJFOC-20200933669

PATIENT
  Sex: Female
  Weight: 51 kg

DRUGS (1)
  1. IPREN UNSPECIFIED [Suspect]
     Active Substance: IBUPROFEN
     Indication: DYSMENORRHOEA
     Dosage: DOSERING: 400?500 MG EVERY 4 HOUR
     Route: 065
     Dates: start: 20140807, end: 20151107

REACTIONS (4)
  - Asthma [Recovered/Resolved with Sequelae]
  - Dyspnoea [Recovered/Resolved with Sequelae]
  - Anaphylactic shock [Recovered/Resolved with Sequelae]
  - Cough [Recovered/Resolved with Sequelae]
